FAERS Safety Report 7586097-9 (Version None)
Quarter: 2011Q3

REPORT INFORMATION
  Report Type: 
  Country: None (occurrence: None)
  Receive Date: 20110701
  Receipt Date: 20110624
  Transmission Date: 20111222
  Serious: Yes (Death, Life-Threatening, Other)
  Sender: FDA-Public Use
  Company Number: JP-MPIJNJ-2011-01443

PATIENT

DRUGS (14)
  1. SULFAMETHOXAZOLE [Concomitant]
     Dosage: 4 DF, UNK
     Route: 048
     Dates: start: 20110222
  2. BIOFERMIN R [Concomitant]
     Dosage: 3 G, UNK
     Route: 048
     Dates: start: 20110328, end: 20110404
  3. DEXAMETHASONE SODIUM PHOSPHATE [Concomitant]
     Dosage: 10 MG, UNK
     Route: 042
     Dates: start: 20110308
  4. VELCADE [Suspect]
     Indication: MULTIPLE MYELOMA
     Dosage: 1.4 MG, 2/WEEK
     Route: 042
     Dates: start: 20110308, end: 20110318
  5. VELCADE [Suspect]
     Dosage: 1.4 MG, 1/WEEK
     Route: 042
     Dates: start: 20110329, end: 20110401
  6. ASPARA-L [Concomitant]
     Dosage: 900 MG, UNK
     Route: 048
     Dates: start: 20110309, end: 20110315
  7. SLOW-K [Concomitant]
     Dosage: 600 MG, UNK
     Route: 048
     Dates: start: 20110324, end: 20110330
  8. LASIX [Concomitant]
     Dosage: 20 MG, UNK
     Route: 048
     Dates: start: 20110318, end: 20110329
  9. AMBISOME [Concomitant]
     Dosage: 50 MG, UNK
     Dates: start: 20110308, end: 20110309
  10. OMEPRAZOLE [Concomitant]
     Dosage: 20 MG, UNK
     Route: 048
     Dates: start: 20110308
  11. SALIGREN [Concomitant]
     Dosage: 30 MG, UNK
     Route: 048
  12. PRIMPERAN                          /00041901/ [Concomitant]
     Dosage: 15 MG, UNK
     Route: 048
     Dates: start: 20110311, end: 20110315
  13. KYTRIL [Concomitant]
     Dosage: 3 MG, UNK
     Route: 042
     Dates: start: 20110308, end: 20110401
  14. ALLOPURINOL [Concomitant]
     Dosage: 50 MG, UNK
     Route: 048
     Dates: start: 20110311, end: 20110322

REACTIONS (3)
  - MULTIPLE MYELOMA [None]
  - INTERSTITIAL LUNG DISEASE [None]
  - CARDIAC FAILURE [None]
